FAERS Safety Report 6234187-5 (Version None)
Quarter: 2009Q2

REPORT INFORMATION
  Report Type: 
  Country: None (occurrence: None)
  Receive Date: 20090618
  Receipt Date: 20090506
  Transmission Date: 20091009
  Serious: Yes (Death)
  Sender: FDA-Public Use
  Company Number: CA-JNJFOC-20090605476

PATIENT
  Age: 14 Year
  Sex: Male

DRUGS (1)
  1. DURAGESIC-100 [Suspect]
     Indication: OROPHARYNGEAL PAIN
     Route: 062

REACTIONS (3)
  - DEATH [None]
  - OFF LABEL USE [None]
  - RESPIRATORY DEPRESSION [None]
